FAERS Safety Report 6562777-9 (Version None)
Quarter: 2010Q1

REPORT INFORMATION
  Report Type: 
  Country: None (occurrence: None)
  Receive Date: 20100130
  Receipt Date: 20091120
  Transmission Date: 20100710
  Serious: No
  Sender: FDA-Public Use
  Company Number: US-ABBOTT-09P-163-0610716-00

PATIENT
  Sex: Female
  Weight: 104.42 kg

DRUGS (10)
  1. HUMIRA [Suspect]
     Indication: RHEUMATOID ARTHRITIS
     Dates: start: 20081101
  2. CYMBALTA [Concomitant]
     Indication: DEPRESSION
  3. CYMBALTA [Concomitant]
     Indication: PAIN MANAGEMENT
  4. IMURAN [Concomitant]
     Indication: RHEUMATOID ARTHRITIS
  5. PLAQUENIL [Concomitant]
     Indication: RHEUMATOID ARTHRITIS
  6. FAB TAB [Concomitant]
     Indication: RHEUMATOID ARTHRITIS
  7. ZYRTEC [Concomitant]
     Indication: HYPERSENSITIVITY
  8. SINGULAIR [Concomitant]
     Indication: ASTHMA
  9. MUCINEX [Concomitant]
     Indication: HYPERSENSITIVITY
  10. SYNTHROID [Concomitant]
     Indication: HYPOTHYROIDISM

REACTIONS (1)
  - SKIN PAPILLOMA [None]
